FAERS Safety Report 4877755-5 (Version None)
Quarter: 2006Q1

REPORT INFORMATION
  Report Type: 
  Country: None (occurrence: None)
  Receive Date: 20060111
  Receipt Date: 20051213
  Transmission Date: 20060701
  Serious: Yes (Hospitalization)
  Sender: FDA-Public Use
  Company Number: US-MERCK-0512USA02101

PATIENT
  Age: 56 Year
  Sex: Male
  Weight: 100 kg

DRUGS (5)
  1. VIOXX [Suspect]
     Indication: ARTHRITIS
     Route: 048
     Dates: start: 20001017, end: 20010507
  2. BIAXIN [Concomitant]
     Route: 065
  3. [THERAPY UNSPECIFIED] [Concomitant]
     Route: 065
  4. AMOXICILLIN [Concomitant]
     Route: 065
  5. FLOMAX (MORNIFLUMATE) [Concomitant]
     Route: 065

REACTIONS (18)
  - ABDOMINAL DISTENSION [None]
  - ARRHYTHMIA [None]
  - ARTHRALGIA [None]
  - ATRIAL FIBRILLATION [None]
  - BLOOD PRESSURE INADEQUATELY CONTROLLED [None]
  - BLOOD PRESSURE INCREASED [None]
  - CARDIOVASCULAR DISORDER [None]
  - CONDITION AGGRAVATED [None]
  - DRUG INEFFECTIVE [None]
  - DYSPNOEA [None]
  - ERUCTATION [None]
  - FLATULENCE [None]
  - HEART RATE IRREGULAR [None]
  - HYPERCHOLESTEROLAEMIA [None]
  - MYALGIA [None]
  - NAUSEA [None]
  - VENTRICULAR EXTRASYSTOLES [None]
  - WEIGHT INCREASED [None]
